FAERS Safety Report 7231129-0 (Version None)
Quarter: 2011Q1

REPORT INFORMATION
  Report Type: 
  Country: None (occurrence: None)
  Receive Date: 20110118
  Receipt Date: 20110114
  Transmission Date: 20110831
  Serious: Yes (Death)
  Sender: FDA-Public Use
  Company Number: US-MEDIMMUNE-MEDI-0012208

PATIENT
  Sex: Female

DRUGS (2)
  1. TYLENOL [Concomitant]
  2. SYNAGIS [Suspect]
     Route: 030
     Dates: start: 20101230, end: 20101230

REACTIONS (2)
  - HEART DISEASE CONGENITAL [None]
  - MALAISE [None]
